FAERS Safety Report 7161567-6 (Version None)
Quarter: 2010Q4

REPORT INFORMATION
  Report Type: 
  Country: None (occurrence: None)
  Receive Date: 20101201
  Receipt Date: 20101115
  Transmission Date: 20110411
  Serious: Yes (Other)
  Sender: FDA-Public Use
  Company Number: DSA_44351_2010

PATIENT
  Age: 77 Year
  Sex: Female

DRUGS (2)
  1. ENALAPRIL MALEATE [Suspect]
     Indication: PRODUCT USED FOR UNKNOWN INDICATION
     Dosage: 10 MG QD ORAL, 5 MG QD ORAL
     Route: 048
     Dates: start: 20100726, end: 20100802
  2. ENALAPRIL MALEATE [Suspect]
     Indication: PRODUCT USED FOR UNKNOWN INDICATION
     Dosage: 10 MG QD ORAL, 5 MG QD ORAL
     Route: 048
     Dates: start: 20100802, end: 20100805

REACTIONS (7)
  - BRONCHOSPASM [None]
  - DIZZINESS [None]
  - DYSPNOEA [None]
  - HYPERTENSION [None]
  - NERVOUSNESS [None]
  - PAIN [None]
  - SYNCOPE [None]
